FAERS Safety Report 11499337 (Version 2)
Quarter: 2015Q3

REPORT INFORMATION
  Report Type: Report from Study
  Country: US (occurrence: US)
  Receive Date: 20150914
  Receipt Date: 20150921
  Transmission Date: 20151125
  Serious: No
  Sender: FDA-Public Use
  Company Number: US-AMGEN-USASP2015089731

PATIENT
  Age: 56 Year
  Sex: Male

DRUGS (1)
  1. ENBREL [Suspect]
     Active Substance: ETANERCEPT
     Indication: PSORIASIS
     Dosage: UNK
     Route: 065
     Dates: start: 20150708

REACTIONS (5)
  - Hypersensitivity [Unknown]
  - Product tampering [Unknown]
  - Lacrimation increased [Unknown]
  - Incorrect dose administered [Unknown]
  - Eye disorder [Unknown]

NARRATIVE: CASE EVENT DATE: 2015
